FAERS Safety Report 24833231 (Version 1)
Quarter: 2025Q1

REPORT INFORMATION
  Report Type: Spontaneous
  Country: FR (occurrence: FR)
  Receive Date: 20250111
  Receipt Date: 20250111
  Transmission Date: 20250409
  Serious: Yes (Life-Threatening, Other)
  Sender: ACCORD
  Company Number: None

PATIENT
  Age: 67 Year
  Sex: Female
  Weight: 98 kg

DRUGS (10)
  1. GLIMEPIRIDE [Interacting]
     Active Substance: GLIMEPIRIDE
     Indication: Type 2 diabetes mellitus
     Dates: end: 20241106
  2. DAPSONE\FERROUS OXALATE [Interacting]
     Active Substance: DAPSONE\FERROUS OXALATE
     Indication: Granulomatosis with polyangiitis
     Dosage: SCORED TABLET
     Dates: start: 20240912, end: 20240919
  3. ATORVASTATIN [Concomitant]
     Active Substance: ATORVASTATIN
  4. GABAPENTIN [Concomitant]
     Active Substance: GABAPENTIN
  5. INSULIN GLARGINE [Concomitant]
     Active Substance: INSULIN GLARGINE
  6. JANUMET [Concomitant]
     Active Substance: METFORMIN HYDROCHLORIDE\SITAGLIPTIN PHOSPHATE
  7. KARDEGIC [Concomitant]
     Active Substance: ASPIRIN DL-LYSINE
  8. VALSARTAN [Concomitant]
     Active Substance: VALSARTAN
  9. DAPSONE\FERROUS OXALATE [Interacting]
     Active Substance: DAPSONE\FERROUS OXALATE
     Indication: Granulomatosis with polyangiitis
     Dosage: SCORED TABLET
     Dates: start: 20240919, end: 20241024
  10. DAPSONE\FERROUS OXALATE [Interacting]
     Active Substance: DAPSONE\FERROUS OXALATE
     Indication: Granulomatosis with polyangiitis
     Dosage: SCORED TABLET
     Dates: start: 20241101, end: 20241105

REACTIONS (7)
  - Agranulocytosis [Recovered/Resolved]
  - Septic shock [Recovered/Resolved]
  - Haemolytic anaemia [Recovered/Resolved]
  - Methaemoglobinaemia [Recovered/Resolved]
  - Potentiating drug interaction [Recovered/Resolved]
  - Wrong dose [Recovered/Resolved]
  - Incorrect dose administered [Recovered/Resolved]

NARRATIVE: CASE EVENT DATE: 20240912
